FAERS Safety Report 8377753-3 (Version None)
Quarter: 2012Q2

REPORT INFORMATION
  Report Type: 
  Country: None (occurrence: None)
  Receive Date: 20120522
  Receipt Date: 20120514
  Transmission Date: 20120825
  Serious: Yes (Other)
  Sender: FDA-Public Use
  Company Number: DE-GLAXOSMITHKLINE-D0075590A

PATIENT
  Age: 33 Year
  Sex: Female
  Weight: 68 kg

DRUGS (4)
  1. DEXAMETHASONE SODIUM PHOSPHATE [Concomitant]
     Indication: ADRENOGENITAL SYNDROME
     Route: 048
  2. HYDROCORTISONE [Concomitant]
     Indication: ADRENOGENITAL SYNDROME
     Dosage: 35MG PER DAY
     Route: 048
     Dates: start: 20100224, end: 20100712
  3. LAMOTRIGINE [Suspect]
     Indication: EPILEPSY
     Dosage: 325MG PER DAY
     Route: 048
     Dates: start: 20100224, end: 20100712
  4. ASTONIN [Concomitant]
     Indication: ADRENOGENITAL SYNDROME
     Dosage: .05MG TWICE PER DAY
     Route: 048
     Dates: start: 20100224, end: 20100712

REACTIONS (2)
  - MATERNAL EXPOSURE DURING PREGNANCY [None]
  - ABORTION INDUCED [None]
